FAERS Safety Report 16931090 (Version 1)
Quarter: 2019Q4

REPORT INFORMATION
  Report Type: Spontaneous
  Country: US (occurrence: US)
  Receive Date: 20191017
  Receipt Date: 20191017
  Transmission Date: 20200122
  Serious: No
  Sender: FDA-Public Use
  Company Number: US-GLAXOSMITHKLINE-US2019181851

PATIENT
  Sex: Female

DRUGS (1)
  1. NUCALA [Suspect]
     Active Substance: MEPOLIZUMAB
     Indication: PRODUCT USED FOR UNKNOWN INDICATION
     Dosage: UNK
     Route: 058
     Dates: start: 201810

REACTIONS (6)
  - Tongue ulceration [Unknown]
  - Injection site erythema [Unknown]
  - Headache [Unknown]
  - Drug ineffective [Unknown]
  - Burning sensation [Unknown]
  - Product preparation issue [Unknown]
